FAERS Safety Report 9513193 (Version 1)
Quarter: 2013Q3

REPORT INFORMATION
  Report Type: Spontaneous
  Country: US (occurrence: US)
  Receive Date: 20130910
  Receipt Date: 20130910
  Transmission Date: 20140515
  Serious: No
  Sender: FDA-Public Use
  Company Number: US-PFIZER INC-2013258058

PATIENT
  Age: 57 Year
  Sex: Female

DRUGS (2)
  1. MOTRIN IB [Suspect]
     Dosage: UNK
  2. ASPIRIN [Concomitant]
     Dosage: UNK

REACTIONS (3)
  - Abdominal pain upper [Unknown]
  - Abdominal discomfort [Unknown]
  - Gastric disorder [Unknown]
